FAERS Safety Report 9355286 (Version 2)
Quarter: 2013Q3

REPORT INFORMATION
  Report Type: Spontaneous
  Country: US (occurrence: US)
  Receive Date: 20130619
  Receipt Date: 20130701
  Transmission Date: 20140515
  Serious: Yes (Other)
  Sender: FDA-Public Use
  Company Number: US-SANOFI-AVENTIS-2013SA060847

PATIENT
  Age: 58 Year
  Sex: Female

DRUGS (5)
  1. LANTUS SOLOSTAR [Suspect]
     Indication: TYPE 2 DIABETES MELLITUS
     Dosage: DOSE:36 UNIT(S)
     Route: 058
  2. SOLOSTAR [Suspect]
     Indication: TYPE 2 DIABETES MELLITUS
  3. CRESTOR [Concomitant]
  4. ALTACE [Concomitant]
  5. AMARYL [Concomitant]

REACTIONS (10)
  - Spinal column stenosis [Unknown]
  - Eye disorder [Unknown]
  - Coronary artery disease [Unknown]
  - Anaemia [Unknown]
  - Diabetic retinopathy [Unknown]
  - Sleep disorder [Unknown]
  - Stress [Unknown]
  - Neuropathy peripheral [Unknown]
  - Incorrect product storage [Unknown]
  - Blood glucose increased [Unknown]
